FAERS Safety Report 14718869 (Version 4)
Quarter: 2018Q3

REPORT INFORMATION
  Report Type: Report from Study
  Country: None (occurrence: US)
  Receive Date: 20180405
  Receipt Date: 20180928
  Transmission Date: 20181010
  Serious: Yes (Other)
  Sender: FDA-Public Use
  Company Number: US-ABBVIE-17K-163-1882901-00

PATIENT
  Age: 44 Year
  Sex: Female

DRUGS (3)
  1. HUMIRA [Suspect]
     Active Substance: ADALIMUMAB
     Indication: RHEUMATOID ARTHRITIS
     Route: 058
     Dates: end: 20170204
  2. PREDNISONE. [Suspect]
     Active Substance: PREDNISONE
     Indication: PRODUCT USED FOR UNKNOWN INDICATION
     Route: 065
  3. HUMIRA [Suspect]
     Active Substance: ADALIMUMAB
     Route: 058

REACTIONS (60)
  - Inflammation [Unknown]
  - Fibromyalgia [Unknown]
  - Dehydration [Unknown]
  - Rheumatoid arthritis [Recovered/Resolved]
  - Feeding disorder [Unknown]
  - Malaise [Unknown]
  - Joint swelling [Unknown]
  - Fatigue [Recovered/Resolved]
  - Fall [Unknown]
  - Respiratory syncytial virus infection [Recovering/Resolving]
  - Drug ineffective [Recovered/Resolved]
  - Erythema [Unknown]
  - Pain in extremity [Not Recovered/Not Resolved]
  - Back pain [Unknown]
  - Suicidal ideation [Recovering/Resolving]
  - Fall [Unknown]
  - Tooth loss [Unknown]
  - Weight increased [Unknown]
  - Breast mass [Unknown]
  - Laboratory test abnormal [Unknown]
  - Bronchitis [Recovering/Resolving]
  - Pain [Unknown]
  - Insomnia [Unknown]
  - Immune system disorder [Unknown]
  - Enuresis [Unknown]
  - Hallucination, auditory [Unknown]
  - Gastritis erosive [Recovering/Resolving]
  - Fatigue [Unknown]
  - Full blood count decreased [Unknown]
  - Tooth extraction [Unknown]
  - Anxiety [Recovering/Resolving]
  - Rheumatoid arthritis [Unknown]
  - Muscular weakness [Recovering/Resolving]
  - Oropharyngeal pain [Unknown]
  - Drug hypersensitivity [Recovering/Resolving]
  - Seasonal allergy [Unknown]
  - Nausea [Recovered/Resolved]
  - Drug ineffective [Unknown]
  - Muscle spasms [Unknown]
  - Ankle fracture [Unknown]
  - Arthropod bite [Unknown]
  - Osteoarthritis [Recovering/Resolving]
  - Hypothyroidism [Unknown]
  - Dysgeusia [Unknown]
  - Mood swings [Recovering/Resolving]
  - Palpitations [Unknown]
  - Peripheral swelling [Unknown]
  - Infection [Recovering/Resolving]
  - Nausea [Unknown]
  - Urinary tract infection [Recovering/Resolving]
  - Alopecia [Unknown]
  - Arthralgia [Unknown]
  - Loss of consciousness [Unknown]
  - Ligament rupture [Unknown]
  - Procedural pain [Unknown]
  - Peripheral coldness [Unknown]
  - Contusion [Unknown]
  - Abdominal distension [Unknown]
  - Panic attack [Unknown]
  - Peripheral swelling [Recovering/Resolving]

NARRATIVE: CASE EVENT DATE: 2017
